FAERS Safety Report 6164517-4 (Version None)
Quarter: 2009Q2

REPORT INFORMATION
  Report Type: 
  Country: None (occurrence: None)
  Receive Date: 20090421
  Receipt Date: 20090406
  Transmission Date: 20091009
  Serious: Yes (Hospitalization, Other)
  Sender: FDA-Public Use
  Company Number: ADE2009-0554

PATIENT
  Age: 56 Year
  Sex: Male

DRUGS (6)
  1. CARVEDILOL [Suspect]
     Indication: ANGINA PECTORIS
     Dosage: 12.5MG, BID
  2. CARVEDILOL [Suspect]
     Indication: CARDIAC FAILURE
     Dosage: 12.5MG, BID
  3. SIMVASTATIN [Suspect]
     Dosage: 40MG, DAILY
  4. CYCLOSPORINE [Suspect]
     Dosage: 75MG-BID
  5. DILTIAZEM [Suspect]
     Indication: CARDIAC FAILURE
     Dosage: 60MG-BID
  6. RANOLAZINE [Suspect]
     Indication: CARDIAC FAILURE
     Dosage: 500MG-DAILY

REACTIONS (6)
  - ANGINA PECTORIS [None]
  - ASPARTATE AMINOTRANSFERASE INCREASED [None]
  - BLOOD CREATINE INCREASED [None]
  - CARDIAC FAILURE [None]
  - DRUG INTERACTION [None]
  - RHABDOMYOLYSIS [None]
